FAERS Safety Report 5012385-6 (Version None)
Quarter: 2006Q2

REPORT INFORMATION
  Report Type: 
  Country: None (occurrence: None)
  Receive Date: 20060414
  Receipt Date: 20060119
  Transmission Date: 20061013
  Serious: No
  Sender: FDA-Public Use
  Company Number: 2006SP000352

PATIENT
  Age: 51 Year
  Sex: Male
  Weight: 97.0698 kg

DRUGS (6)
  1. LUNESTA [Suspect]
     Indication: INSOMNIA
     Dosage: 4 MG; HS; ORAL;  3 MG; HS; ORAL;  2 MG; HS; ORAL
     Route: 048
     Dates: start: 20051101, end: 20050101
  2. LUNESTA [Suspect]
     Indication: INSOMNIA
     Dosage: 4 MG; HS; ORAL;  3 MG; HS; ORAL;  2 MG; HS; ORAL
     Route: 048
     Dates: start: 20050101, end: 20060124
  3. LUNESTA [Suspect]
     Indication: INSOMNIA
     Dosage: 4 MG; HS; ORAL;  3 MG; HS; ORAL;  2 MG; HS; ORAL
     Route: 048
     Dates: start: 20060125
  4. ALEVE (CAPLET) [Concomitant]
  5. NORCO [Concomitant]
  6. ATIVAN [Concomitant]

REACTIONS (1)
  - DYSGEUSIA [None]
